FAERS Safety Report 24304461 (Version 1)
Quarter: 2024Q3

REPORT INFORMATION
  Report Type: Spontaneous
  Country: US (occurrence: None)
  Receive Date: 20240910
  Receipt Date: 20240910
  Transmission Date: 20241017
  Serious: Yes (Other)
  Sender: Public
  Company Number: None

PATIENT
  Sex: Female

DRUGS (1)
  1. SUBOXONE [Suspect]
     Active Substance: BUPRENORPHINE HYDROCHLORIDE\NALOXONE HYDROCHLORIDE
     Indication: Product used for unknown indication
     Dates: start: 20170401, end: 20171215

REACTIONS (6)
  - Adverse drug reaction [None]
  - Migraine [None]
  - Nausea [None]
  - Burning sensation [None]
  - Urticaria [None]
  - Drug ineffective [None]

NARRATIVE: CASE EVENT DATE: 20170510
